FAERS Safety Report 9174070 (Version 1)
Quarter: 2013Q1

REPORT INFORMATION
  Report Type: Spontaneous
  Country: GB (occurrence: None)
  Receive Date: 20130315
  Receipt Date: 20130315
  Transmission Date: 20140127
  Serious: Yes (Other)
  Sender: FDA-Public Use
  Company Number: NPIL/SEV/H/2013/5I

PATIENT
  Age: 71 Year
  Sex: Male

DRUGS (7)
  1. REMIFENTANIL [Suspect]
     Route: 042
     Dates: start: 20121101
  2. SEVOFLURANE [Suspect]
     Route: 055
     Dates: start: 20121101
  3. PROPOFOL [Concomitant]
  4. LIGNOCAINE (LIDOCAINE) [Concomitant]
  5. EZETROL (EZETIMIBE) [Concomitant]
  6. CETRIZINE [Concomitant]
  7. ARTHROTEC (DICLOFENAC SODIUM+MISOPROSTOL) [Concomitant]

REACTIONS (4)
  - Bradycardia [None]
  - Cardiac arrest [None]
  - Drug interaction [None]
  - Rash erythematous [None]
